FAERS Safety Report 6672056-7 (Version None)
Quarter: 2010Q2

REPORT INFORMATION
  Report Type: 
  Country: None (occurrence: None)
  Receive Date: 20100406
  Receipt Date: 20100322
  Transmission Date: 20101027
  Serious: Yes (Disabling, Other)
  Sender: FDA-Public Use
  Company Number: AUR-APL-2010-00846

PATIENT
  Age: 29 Year
  Sex: Female

DRUGS (1)
  1. TOPIRAMATE [Suspect]
     Indication: EPILEPSY
     Dosage: 200MG - DAILY

REACTIONS (7)
  - DEPRESSION [None]
  - GRANULOMA ANNULARE [None]
  - MUSCULAR WEAKNESS [None]
  - MYALGIA [None]
  - PYREXIA [None]
  - TREATMENT FAILURE [None]
  - WEIGHT DECREASED [None]
